FAERS Safety Report 6915843-X (Version None)
Quarter: 2010Q3

REPORT INFORMATION
  Report Type: 
  Country: None (occurrence: None)
  Receive Date: 20100810
  Receipt Date: 20100802
  Transmission Date: 20110219
  Serious: Yes (Hospitalization)
  Sender: FDA-Public Use
  Company Number: US-BAYER-201028148NA

PATIENT
  Age: 73 Year
  Sex: Male
  Weight: 91 kg

DRUGS (2)
  1. ULTRAVIST 300 [Suspect]
     Indication: POSITRON EMISSION TOMOGRAM
     Dates: start: 20100626, end: 20100626
  2. RADIOACTIVE GLUCOSE [Concomitant]
     Indication: POSITRON EMISSION TOMOGRAM

REACTIONS (5)
  - CONTRAST MEDIA ALLERGY [None]
  - FLANK PAIN [None]
  - HYPERHIDROSIS [None]
  - NAUSEA [None]
  - VOMITING [None]
